FAERS Safety Report 14789882 (Version 1)
Quarter: 2018Q2

REPORT INFORMATION
  Report Type: Spontaneous
  Country: US (occurrence: US)
  Receive Date: 20180423
  Receipt Date: 20180423
  Transmission Date: 20180711
  Serious: No
  Sender: FDA-Public Use
  Company Number: US-PFIZER INC-2018163728

PATIENT
  Age: 62 Year
  Sex: Male

DRUGS (2)
  1. LEVOTHYROXINE SODIUM. [Suspect]
     Active Substance: LEVOTHYROXINE SODIUM
     Indication: HORMONE REPLACEMENT THERAPY
     Dosage: 200 UG, UNK
  2. LEVOTHYROXINE SODIUM. [Suspect]
     Active Substance: LEVOTHYROXINE SODIUM
     Dosage: 25 UG, UNK

REACTIONS (2)
  - Product use in unapproved indication [Unknown]
  - Hormone level abnormal [Unknown]
